FAERS Safety Report 25070496 (Version 3)
Quarter: 2025Q4

REPORT INFORMATION
  Report Type: Report from Study
  Country: US (occurrence: US)
  Receive Date: 20250312
  Receipt Date: 20251119
  Transmission Date: 20260117
  Serious: Yes (Disabling)
  Sender: NOVARTIS
  Company Number: US-002147023-NVSC2023US265426

PATIENT
  Age: 53 Year
  Sex: Female

DRUGS (2)
  1. COSENTYX [Suspect]
     Active Substance: SECUKINUMAB
     Indication: Psoriasis
     Dosage: 300 MG/KG, QMO
     Route: 065
     Dates: start: 20221122, end: 20231112
  2. COSENTYX [Suspect]
     Active Substance: SECUKINUMAB
     Dosage: 300 MG
     Route: 058
     Dates: end: 202312

REACTIONS (14)
  - Eyelid rash [Not Recovered/Not Resolved]
  - Condition aggravated [Not Recovered/Not Resolved]
  - Visual impairment [Unknown]
  - Ocular discomfort [Unknown]
  - Dry eye [Unknown]
  - Rash [Unknown]
  - Bronchitis [Unknown]
  - Pharyngitis streptococcal [Recovered/Resolved]
  - Hepatic steatosis [Unknown]
  - Skin fissures [Unknown]
  - Eyelid function disorder [Unknown]
  - Product supply issue [Unknown]
  - Psoriasis [Unknown]
  - Therapeutic product effect incomplete [Unknown]

NARRATIVE: CASE EVENT DATE: 20231104
